FAERS Safety Report 24332982 (Version 1)
Quarter: 2024Q3

REPORT INFORMATION
  Report Type: Spontaneous
  Country: CN (occurrence: CN)
  Receive Date: 20240918
  Receipt Date: 20240918
  Transmission Date: 20241016
  Serious: Yes (Life-Threatening, Hospitalization, Other)
  Sender: PFIZER
  Company Number: CN-PFIZER INC-PV202400120945

PATIENT
  Age: 38 Year
  Sex: Male
  Weight: 75 kg

DRUGS (8)
  1. CYTARABINE [Suspect]
     Active Substance: CYTARABINE
     Indication: Acute myeloid leukaemia
     Dosage: 0.2 G, 1X/DAY
     Route: 041
     Dates: start: 20240903
  2. DAUNORUBICIN HYDROCHLORIDE [Suspect]
     Active Substance: DAUNORUBICIN HYDROCHLORIDE
     Indication: Acute myeloid leukaemia
     Dosage: 60 MG, 1X/DAY
     Route: 041
     Dates: start: 20240902, end: 20240902
  3. DAUNORUBICIN HYDROCHLORIDE [Suspect]
     Active Substance: DAUNORUBICIN HYDROCHLORIDE
     Dosage: 70 MG, 1X/DAY
     Route: 041
     Dates: start: 20240903
  4. SODIUM CHLORIDE [Concomitant]
     Active Substance: SODIUM CHLORIDE
     Indication: Vehicle solution use
     Dosage: 100 ML, 1X/DAY
     Route: 041
     Dates: start: 20240902, end: 20240906
  5. SODIUM CHLORIDE [Concomitant]
     Active Substance: SODIUM CHLORIDE
     Indication: Vehicle solution use
     Dosage: 500 ML, 1X/DAY
     Route: 041
     Dates: start: 20240903, end: 20240911
  6. MEROPENEM [Concomitant]
     Active Substance: MEROPENEM
     Dosage: UNK
     Dates: start: 202409
  7. TEICOPLANIN [Concomitant]
     Active Substance: TEICOPLANIN
     Dosage: UNK
     Dates: start: 202409, end: 20240904
  8. VANCOMYCIN [Concomitant]
     Active Substance: VANCOMYCIN
     Dosage: UNK
     Dates: start: 20240904, end: 20240912

REACTIONS (4)
  - Agranulocytosis [Not Recovered/Not Resolved]
  - Platelet count decreased [Unknown]
  - Red blood cell count decreased [Unknown]
  - Haemoglobin decreased [Unknown]

NARRATIVE: CASE EVENT DATE: 20240906
